FAERS Safety Report 13229438 (Version 1)
Quarter: 2017Q1

REPORT INFORMATION
  Report Type: Spontaneous
  Country: US (occurrence: US)
  Receive Date: 20170213
  Receipt Date: 20170213
  Transmission Date: 20170428
  Serious: No
  Sender: FDA-Public Use
  Company Number: None

PATIENT
  Age: 46 Year
  Sex: Female
  Weight: 46.35 kg

DRUGS (2)
  1. MULTI VITAMIN [Concomitant]
     Active Substance: VITAMINS
  2. SINGULAIR [Suspect]
     Active Substance: MONTELUKAST SODIUM
     Indication: MULTIPLE ALLERGIES
     Dosage: ?          QUANTITY:1 TABLET(S);OTHER ROUTE:MOUTH?
     Route: 048
     Dates: start: 20170207, end: 20170208

REACTIONS (3)
  - Insomnia [None]
  - Abnormal behaviour [None]
  - Anxiety [None]
